FAERS Safety Report 9389047 (Version 4)
Quarter: 2014Q2

REPORT INFORMATION
  Report Type: Spontaneous
  Country: IT (occurrence: IT)
  Receive Date: 20130708
  Receipt Date: 20140407
  Transmission Date: 20141212
  Serious: Yes (Hospitalization)
  Sender: FDA-Public Use
  Company Number: IT-BAXTER-2013BAX025321

PATIENT
  Age: 63 Year
  Sex: Female
  Weight: 57 kg

DRUGS (3)
  1. HOLOXAN [Suspect]
     Indication: ALVEOLAR SOFT PART SARCOMA
     Route: 042
     Dates: start: 20110408, end: 20110412
  2. SODIUM CHLORIDE_SODIUM CHLORIDE 0.90 %_SOLUTION FOR INFUSION_BAG, PVC [Suspect]
     Indication: PRODUCT USED FOR UNKNOWN INDICATION
     Route: 065
  3. EPIRUBICIN [Suspect]
     Indication: ALVEOLAR SOFT PART SARCOMA
     Route: 042
     Dates: start: 20110408, end: 20110409

REACTIONS (4)
  - Anaemia [Recovered/Resolved]
  - Erysipelas [Recovered/Resolved]
  - Leukopenia [Recovered/Resolved]
  - Thrombocytopenia [Recovered/Resolved]
